FAERS Safety Report 7945364-7 (Version None)
Quarter: 2011Q4

REPORT INFORMATION
  Report Type: 
  Country: None (occurrence: None)
  Receive Date: 20111129
  Receipt Date: 20110511
  Transmission Date: 20120403
  Serious: No
  Sender: FDA-Public Use
  Company Number: US-GLAXOSMITHKLINE-A0927007A

PATIENT
  Age: 30 Year
  Sex: Female

DRUGS (6)
  1. CLONAZEPAM [Concomitant]
  2. BUPROPION HCL [Suspect]
     Indication: DEPRESSION
     Dosage: 200MG TWICE PER DAY
     Route: 048
     Dates: start: 20100501
  3. LAMICTAL [Concomitant]
  4. ABILIFY [Concomitant]
  5. MULTI-VITAMIN [Concomitant]
  6. OMEGA 3-6-9 [Concomitant]

REACTIONS (1)
  - ALOPECIA [None]
